FAERS Safety Report 8585202-5 (Version None)
Quarter: 2012Q3

REPORT INFORMATION
  Report Type: 
  Country: None (occurrence: None)
  Receive Date: 20120810
  Receipt Date: 20120807
  Transmission Date: 20120928
  Serious: Yes (Other)
  Sender: FDA-Public Use
  Company Number: PHHY2011CA62300

PATIENT
  Sex: Female

DRUGS (2)
  1. SANDOSTATIN LAR [Suspect]
     Indication: NEUROENDOCRINE TUMOUR
     Dosage: 40 MG, EVERY 4 WEEKS
     Route: 030
     Dates: start: 20110607
  2. SANDOSTATIN LAR [Suspect]
     Dosage: 30 MG, EVERY 4 WEEKS
     Route: 030

REACTIONS (10)
  - MUSCULOSKELETAL PAIN [None]
  - BURSITIS [None]
  - ALOPECIA [None]
  - ASTHENIA [None]
  - PAIN [None]
  - INFLAMMATION [None]
  - HEPATIC NEOPLASM [None]
  - SCAR [None]
  - PRURITUS [None]
  - PALPITATIONS [None]
